FAERS Safety Report 9938546 (Version 1)
Quarter: 2014Q1

REPORT INFORMATION
  Report Type: Report from Study
  Country: US (occurrence: US)
  Receive Date: 20140303
  Receipt Date: 20140303
  Transmission Date: 20141002
  Serious: Yes (Hospitalization, Other)
  Sender: FDA-Public Use
  Company Number: US-ROCHE-1354285

PATIENT
  Sex: Male
  Weight: 89.89 kg

DRUGS (1)
  1. AVASTIN [Suspect]
     Indication: LUNG NEOPLASM MALIGNANT
     Route: 065
     Dates: start: 20131218

REACTIONS (9)
  - Cardiac fibrillation [Recovering/Resolving]
  - Haemoptysis [Recovered/Resolved]
  - Pneumonia [Recovered/Resolved]
  - Thrombosis [Recovered/Resolved]
  - Asthenia [Recovered/Resolved]
  - Oxygen saturation decreased [Not Recovered/Not Resolved]
  - Nasal dryness [Recovering/Resolving]
  - Back pain [Not Recovered/Not Resolved]
  - Oxygen consumption increased [Not Recovered/Not Resolved]
